FAERS Safety Report 6583775-5 (Version None)
Quarter: 2010Q1

REPORT INFORMATION
  Report Type: 
  Country: None (occurrence: None)
  Receive Date: 20100213
  Receipt Date: 20100213
  Transmission Date: 20100710
  Serious: Yes (Other)
  Sender: FDA-Public Use
  Company Number: None

PATIENT
  Age: 40 Year
  Sex: Female
  Weight: 61.2356 kg

DRUGS (1)
  1. PLAN B ONE-STEP [Suspect]
     Indication: POST COITAL CONTRACEPTION
     Dosage: ONE DOSE, USED ONE DAY ONLY
     Dates: start: 20091203, end: 20091203

REACTIONS (2)
  - MENORRHAGIA [None]
  - MENSTRUATION DELAYED [None]
